FAERS Safety Report 10036359 (Version 1)
Quarter: 2014Q1

REPORT INFORMATION
  Report Type: Spontaneous
  Country: FR (occurrence: FR)
  Receive Date: 20140325
  Receipt Date: 20140325
  Transmission Date: 20141002
  Serious: Yes (Hospitalization, Other)
  Sender: FDA-Public Use
  Company Number: FR-B.I. PHARMACEUTICALS,INC./RIDGEFIELD-2014-BI-11920FF

PATIENT
  Age: 69 Year
  Sex: Female

DRUGS (1)
  1. SIFROL [Suspect]
     Indication: RESTLESS LEGS SYNDROME
     Dosage: 0.7 MG
     Route: 048
     Dates: start: 201206, end: 20131204

REACTIONS (2)
  - Oedema peripheral [Recovered/Resolved]
  - Hyperthyroidism [Recovered/Resolved with Sequelae]
